FAERS Safety Report 6171623-7 (Version None)
Quarter: 2009Q2

REPORT INFORMATION
  Report Type: 
  Country: None (occurrence: None)
  Receive Date: 20090428
  Receipt Date: 20090428
  Transmission Date: 20091009
  Serious: Yes (Other)
  Sender: FDA-Public Use
  Company Number: None

PATIENT
  Age: 42 Year
  Sex: Female
  Weight: 49.8957 kg

DRUGS (1)
  1. LEXAPRO [Suspect]
     Indication: DEPRESSION
     Dosage: NOW: .5MG DAILY PO
     Route: 048
     Dates: start: 20040606, end: 20090427

REACTIONS (5)
  - FAMILY STRESS [None]
  - IMPAIRED WORK ABILITY [None]
  - PARAESTHESIA [None]
  - QUALITY OF LIFE DECREASED [None]
  - TINNITUS [None]
